FAERS Safety Report 11058566 (Version 1)
Quarter: 2015Q2

REPORT INFORMATION
  Report Type: Report from Study
  Country: US (occurrence: None)
  Receive Date: 20150420
  Receipt Date: 20150420
  Transmission Date: 20150821
  Serious: No
  Sender: FDA-Public Use
  Company Number: AEGR001079

PATIENT
  Age: 58 Year
  Sex: Male
  Weight: 91.6 kg

DRUGS (1)
  1. JUXTAPID [Suspect]
     Active Substance: LOMITAPIDE MESYLATE
     Indication: PRODUCT USED FOR UNKNOWN INDICATION
     Dates: start: 201412

REACTIONS (2)
  - Product used for unknown indication [None]
  - Diarrhoea [None]

NARRATIVE: CASE EVENT DATE: 20141224
